FAERS Safety Report 12924556 (Version 1)
Quarter: 2016Q4

REPORT INFORMATION
  Report Type: Spontaneous
  Country: IT (occurrence: IT)
  Receive Date: 20161108
  Receipt Date: 20161108
  Transmission Date: 20170207
  Serious: Yes (Other)
  Sender: FDA-Public Use
  Company Number: IT-ASTRAZENECA-2016SF15999

PATIENT
  Age: 22336 Day
  Sex: Female

DRUGS (1)
  1. SEROQUEL [Suspect]
     Active Substance: QUETIAPINE FUMARATE
     Indication: AGITATED DEPRESSION
     Route: 048
     Dates: start: 20121019, end: 20161029

REACTIONS (4)
  - Apraxia [Recovering/Resolving]
  - Circumstance or information capable of leading to medication error [Recovering/Resolving]
  - Dysarthria [Recovering/Resolving]
  - Ataxia [Recovering/Resolving]

NARRATIVE: CASE EVENT DATE: 20161019
